FAERS Safety Report 8285431-4 (Version None)
Quarter: 2012Q2

REPORT INFORMATION
  Report Type: 
  Country: None (occurrence: None)
  Receive Date: 20120413
  Receipt Date: 20111219
  Transmission Date: 20120825
  Serious: No
  Sender: FDA-Public Use
  Company Number: US-ASTRAZENECA-2010SE58779

PATIENT
  Age: 62 Year
  Sex: Female
  Weight: 65.8 kg

DRUGS (10)
  1. RITALIN [Concomitant]
  2. NEXIUM [Suspect]
     Dosage: EVERY 3 TO 4 DAYS
     Route: 048
  3. SEROQUEL [Suspect]
     Dosage: EVERY 3 TO 4 DAYS
     Route: 048
  4. LEXAPRO [Concomitant]
  5. LIPITOR [Concomitant]
  6. SEROQUEL [Suspect]
     Indication: DEPRESSION
     Route: 048
     Dates: start: 20050101
  7. DIOVAN HCT [Concomitant]
  8. EFFEXOR [Concomitant]
  9. XANAX [Concomitant]
  10. METFORMIN HCL [Concomitant]

REACTIONS (8)
  - DYSPEPSIA [None]
  - DRUG INEFFECTIVE [None]
  - CRYING [None]
  - GASTROOESOPHAGEAL REFLUX DISEASE [None]
  - CHEST DISCOMFORT [None]
  - DEPRESSION [None]
  - THERAPY REGIMEN CHANGED [None]
  - DRUG DOSE OMISSION [None]
